FAERS Safety Report 11427443 (Version 1)
Quarter: 2015Q3

REPORT INFORMATION
  Report Type: Spontaneous
  Country: US (occurrence: None)
  Receive Date: 20150827
  Receipt Date: 20150827
  Transmission Date: 20151125
  Serious: Yes (Hospitalization)
  Sender: FDA-Public Use
  Company Number: None

PATIENT
  Age: 76 Year
  Sex: Male
  Weight: 105.9 kg

DRUGS (2)
  1. ASPIRIN. [Suspect]
     Active Substance: ASPIRIN
     Indication: ACUTE CORONARY SYNDROME
     Route: 048
     Dates: start: 20150522, end: 20150803
  2. CLOPIDOGREL [Suspect]
     Active Substance: CLOPIDOGREL BISULFATE
     Indication: ACUTE CORONARY SYNDROME
     Route: 048
     Dates: start: 20150603, end: 20150803

REACTIONS (8)
  - Incontinence [None]
  - Tongue injury [None]
  - Blood creatine phosphokinase increased [None]
  - Troponin increased [None]
  - Amnesia [None]
  - Subdural haematoma [None]
  - Liver function test abnormal [None]
  - Seizure [None]

NARRATIVE: CASE EVENT DATE: 20150803
